FAERS Safety Report 9953419 (Version 1)
Quarter: 2014Q1

REPORT INFORMATION
  Report Type: Report from Study
  Country: US (occurrence: US)
  Receive Date: 20140304
  Receipt Date: 20140304
  Transmission Date: 20141002
  Serious: No
  Sender: FDA-Public Use
  Company Number: US-ABBVIE-13P-163-1073609-00

PATIENT
  Sex: Male
  Weight: 86.26 kg

DRUGS (3)
  1. HUMIRA [Suspect]
     Indication: CROHN^S DISEASE
     Dates: start: 201212
  2. DIOVAN [Concomitant]
     Indication: HYPERTENSION
  3. VICODIN [Concomitant]
     Indication: ARTHRALGIA

REACTIONS (1)
  - Headache [Recovered/Resolved]
